FAERS Safety Report 22211580 (Version 1)
Quarter: 2023Q2

REPORT INFORMATION
  Report Type: Spontaneous
  Country: US (occurrence: US)
  Receive Date: 20230414
  Receipt Date: 20230414
  Transmission Date: 20230721
  Serious: Yes (Other)
  Sender: FDA-Public Use
  Company Number: US-APOTEX-2023AP007084

PATIENT

DRUGS (1)
  1. TEMOZOLOMIDE [Suspect]
     Active Substance: TEMOZOLOMIDE
     Indication: Glioblastoma
     Dosage: UNK
     Route: 065

REACTIONS (12)
  - Deep vein thrombosis [Unknown]
  - Pulmonary embolism [Unknown]
  - Seizure [Unknown]
  - Cognitive disorder [Unknown]
  - Speech disorder [Unknown]
  - Language disorder [Unknown]
  - Leukocytosis [Unknown]
  - Urinary incontinence [Unknown]
  - Oedema peripheral [Unknown]
  - Asthenia [Unknown]
  - Constipation [Unknown]
  - Pyrexia [Unknown]
